FAERS Safety Report 7998299-8 (Version None)
Quarter: 2011Q4

REPORT INFORMATION
  Report Type: 
  Country: None (occurrence: None)
  Receive Date: 20111221
  Receipt Date: 20110624
  Transmission Date: 20120403
  Serious: No
  Sender: FDA-Public Use
  Company Number: US-GLAXOSMITHKLINE-A0932940A

PATIENT
  Age: 68 Year
  Sex: Male

DRUGS (12)
  1. SPIRONOLACTONE [Concomitant]
  2. ALLOPURINOL [Concomitant]
  3. NIACIN [Concomitant]
  4. SAW PALMETTO [Concomitant]
  5. ASPIRIN [Concomitant]
  6. IBUPROFEN [Concomitant]
  7. QVAR 40 [Concomitant]
  8. LOVAZA [Suspect]
     Indication: BLOOD CHOLESTEROL
     Dosage: 2CAP TWICE PER DAY
     Route: 048
     Dates: start: 20110201
  9. SINGULAIR [Concomitant]
  10. CARDURA [Concomitant]
  11. ALLERGY INJECTIONS [Concomitant]
  12. VERAMYST [Concomitant]

REACTIONS (1)
  - THERAPEUTIC RESPONSE UNEXPECTED [None]
